FAERS Safety Report 6856784-6 (Version None)
Quarter: 2010Q3

REPORT INFORMATION
  Report Type: 
  Country: None (occurrence: None)
  Receive Date: 20100719
  Receipt Date: 20100708
  Transmission Date: 20110219
  Serious: Yes (Hospitalization, Other)
  Sender: FDA-Public Use
  Company Number: US-AMGEN-QUU423320

PATIENT
  Sex: Female

DRUGS (1)
  1. ENBREL [Suspect]
     Indication: RHEUMATOID ARTHRITIS
     Route: 058
     Dates: start: 19990901

REACTIONS (6)
  - ANKLE FRACTURE [None]
  - FALL [None]
  - INFECTION [None]
  - INJECTION SITE PAIN [None]
  - POST PROCEDURAL INFECTION [None]
  - SARCOIDOSIS [None]
